FAERS Safety Report 4349463-0 (Version None)
Quarter: 2004Q2

REPORT INFORMATION
  Report Type: 
  Country: None (occurrence: None)
  Receive Date: 20040426
  Receipt Date: 20040415
  Transmission Date: 20050107
  Serious: Yes (Death, Life-Threatening, Hospitalization, Disabling)
  Sender: FDA-Public Use
  Company Number: 205991

PATIENT
  Age: 79 Year
  Sex: Male

DRUGS (6)
  1. ACTILYSE (ALTEPLASE) [Suspect]
     Indication: CEREBROVASCULAR ACCIDENT
     Dosage: 54 MG,SINGLE, INTRAVENOUS
     Route: 042
     Dates: start: 20040408, end: 20040408
  2. CEFTRIAXONE [Concomitant]
  3. METRONIDAZOLE [Concomitant]
  4. METOCARD (METOPROLOL TARTRATE) [Concomitant]
  5. DIGOXIN [Concomitant]
  6. RELANIUM (DIAZEPAM) [Concomitant]

REACTIONS (1)
  - MYOCARDIAL INFARCTION [None]
